FAERS Safety Report 25854052 (Version 2)
Quarter: 2025Q4

REPORT INFORMATION
  Report Type: Report from Study
  Country: EU (occurrence: EU)
  Receive Date: 20250926
  Receipt Date: 20251002
  Transmission Date: 20260118
  Serious: Yes (Death, Other)
  Sender: PFIZER
  Company Number: EU-PFIZER INC-PV202500114813

PATIENT

DRUGS (3)
  1. CYTARABINE [Suspect]
     Active Substance: CYTARABINE
     Indication: Mantle cell lymphoma
     Dosage: 500 MG/M2 (ON DAYS 1, 2, AND 3) EVERY 4 WEEKS FOR UP TO SIX CYCLES
     Route: 042
  2. RITUXIMAB [Suspect]
     Active Substance: RITUXIMAB
     Indication: Mantle cell lymphoma
     Dosage: 375 MG/M2 (ON DAY 1) EVERY 4 WEEKS FOR UP TO SIX CYCLES
     Route: 042
  3. BENDAMUSTINE HYDROCHLORIDE [Suspect]
     Active Substance: BENDAMUSTINE HYDROCHLORIDE
     Indication: Mantle cell lymphoma
     Dosage: 70 MG/M2 (ON DAYS 1 AND 2) EVERY 4 WEEKS FOR UP TO SIX CYCLES
     Route: 042

REACTIONS (1)
  - Tumour lysis syndrome [Fatal]
